APPROVED DRUG PRODUCT: HYDROCORTISONE
Active Ingredient: HYDROCORTISONE
Strength: 10MG
Dosage Form/Route: TABLET;ORAL
Application: A084247 | Product #003
Applicant: PUREPAC PHARMACEUTICAL CO
Approved: Aug 31, 1982 | RLD: No | RS: No | Type: DISCN